FAERS Safety Report 9410311 (Version 6)
Quarter: 2014Q1

REPORT INFORMATION
  Report Type: Spontaneous
  Country: US (occurrence: US)
  Receive Date: 20130719
  Receipt Date: 20140328
  Transmission Date: 20141002
  Serious: Yes (Hospitalization, Other)
  Sender: FDA-Public Use
  Company Number: US-BAXTER-2013BAX027865

PATIENT
  Age: 72 Year
  Sex: Male

DRUGS (3)
  1. DIANEAL LOW CALCIUM [Suspect]
     Indication: PERITONEAL DIALYSIS
     Route: 033
  2. DIANEAL LOW CALCIUM [Suspect]
     Indication: PERITONEAL DIALYSIS
     Route: 033
  3. DIANEAL LOW CALCIUM (ULTRABAG) [Suspect]
     Indication: PERITONEAL DIALYSIS
     Route: 033

REACTIONS (9)
  - Cardiac disorder [Recovering/Resolving]
  - Cardiac failure congestive [Not Recovered/Not Resolved]
  - Chest pain [Recovered/Resolved]
  - Device related infection [Unknown]
  - Fluid overload [Recovered/Resolved]
  - Wrong drug administered [Recovered/Resolved]
  - Hyperphagia [Recovered/Resolved]
  - Procedural pain [Unknown]
  - Gastric infection [Unknown]
